FAERS Safety Report 9861924 (Version 2)
Quarter: 2014Q2

REPORT INFORMATION
  Report Type: Spontaneous
  Country: GB (occurrence: GB)
  Receive Date: 20140203
  Receipt Date: 20140403
  Transmission Date: 20141212
  Serious: Yes (Other)
  Sender: FDA-Public Use
  Company Number: GB-JNJFOC-20140114930

PATIENT
  Age: 62 Year
  Sex: Male

DRUGS (3)
  1. NIZORAL 2% [Suspect]
     Indication: SEBORRHOEIC DERMATITIS
     Dosage: FROM 6 YEARS
     Route: 061
     Dates: start: 2008
  2. NIZORAL 2% [Suspect]
     Indication: DANDRUFF
     Dosage: FROM 6 YEARS
     Route: 061
     Dates: start: 2008
  3. BETTAMOUSSE [Concomitant]
     Route: 065

REACTIONS (1)
  - Psoriasis [Unknown]
